FAERS Safety Report 9838776 (Version 1)
Quarter: 2014Q1

REPORT INFORMATION
  Report Type: Spontaneous
  Country: US (occurrence: None)
  Receive Date: 20140117
  Receipt Date: 20140117
  Transmission Date: 20141002
  Serious: No
  Sender: FDA-Public Use
  Company Number: None

PATIENT
  Age: 32 Year
  Sex: Male

DRUGS (1)
  1. WELLBUTRIN NOT PROVIDED GLAXOSMITHKLINE [Suspect]
     Indication: SMOKING CESSATION THERAPY

REACTIONS (2)
  - Feeling jittery [None]
  - Insomnia [None]
